FAERS Safety Report 4696645-4 (Version None)
Quarter: 2005Q2

REPORT INFORMATION
  Report Type: 
  Country: None (occurrence: None)
  Receive Date: 20050616
  Receipt Date: 20050420
  Transmission Date: 20051028
  Serious: No
  Sender: FDA-Public Use
  Company Number: BDI-007135

PATIENT
  Age: 49 Year
  Sex: Female
  Weight: 213 kg

DRUGS (4)
  1. MULTIHANCE [Suspect]
     Indication: MULTIPLE SCLEROSIS
     Dosage: 25 ML ONCE IV
     Route: 042
     Dates: start: 20050409, end: 20050409
  2. MULTIHANCE [Suspect]
     Indication: NUCLEAR MAGNETIC RESONANCE IMAGING BRAIN
     Dosage: 25 ML ONCE IV
     Route: 042
     Dates: start: 20050409, end: 20050409
  3. MULTIHANCE [Suspect]
     Indication: MULTIPLE SCLEROSIS
     Dosage: IV
     Route: 042
     Dates: start: 20050409, end: 20050409
  4. MULTIHANCE [Suspect]
     Indication: NUCLEAR MAGNETIC RESONANCE IMAGING BRAIN
     Dosage: IV
     Route: 042
     Dates: start: 20050409, end: 20050409

REACTIONS (1)
  - URTICARIA [None]
